FAERS Safety Report 5836400-2 (Version None)
Quarter: 2008Q3

REPORT INFORMATION
  Report Type: 
  Country: None (occurrence: None)
  Receive Date: 20080806
  Receipt Date: 20080806
  Transmission Date: 20090109
  Serious: Yes (Other)
  Sender: FDA-Public Use
  Company Number: None

PATIENT
  Age: 63 Year
  Sex: Male
  Weight: 71.6683 kg

DRUGS (1)
  1. CORICIDIN [Suspect]
     Indication: NASOPHARYNGITIS
     Dosage: 1 TABLETS EVERY 12 HOURS PO
     Route: 048
     Dates: start: 20070609, end: 20070610

REACTIONS (5)
  - ASTHENIA [None]
  - DEVICE BREAKAGE [None]
  - HEAD INJURY [None]
  - LACERATION [None]
  - LOSS OF CONSCIOUSNESS [None]
